FAERS Safety Report 4458086-4 (Version None)
Quarter: 2004Q3

REPORT INFORMATION
  Report Type: 
  Country: None (occurrence: None)
  Receive Date: 20040922
  Receipt Date: 20040908
  Transmission Date: 20050211
  Serious: Yes (Other)
  Sender: FDA-Public Use
  Company Number: DE_040814207

PATIENT
  Age: 64 Year
  Sex: Male

DRUGS (2)
  1. CIALIS [Suspect]
     Indication: ERECTILE DYSFUNCTION
     Dates: start: 20030101
  2. ALMA (TAMSULOSIN HYDROCHLORIDE) [Concomitant]

REACTIONS (4)
  - BLINDNESS UNILATERAL [None]
  - INTENTIONAL MISUSE [None]
  - RETINAL HAEMORRHAGE [None]
  - VISION BLURRED [None]
